FAERS Safety Report 9429166 (Version 2)
Quarter: 2013Q3

REPORT INFORMATION
  Report Type: Spontaneous
  Country: US (occurrence: US)
  Receive Date: 20130730
  Receipt Date: 20130830
  Transmission Date: 20140515
  Serious: Yes (Hospitalization, Other)
  Sender: FDA-Public Use
  Company Number: US-ELI_LILLY_AND_COMPANY-US201307007314

PATIENT
  Sex: Male

DRUGS (10)
  1. HUMALOG 25% LISPRO, 75% NPL [Suspect]
     Indication: DIABETES MELLITUS
     Dosage: 55 U, BID
  2. HUMALOG 25% LISPRO, 75% NPL [Suspect]
     Dosage: 20 U, BID
  3. HUMALOG 25% LISPRO, 75% NPL [Suspect]
     Indication: DIABETES MELLITUS
     Dosage: 55 U, BID
     Dates: start: 2011
  4. HUMALOG 25% LISPRO, 75% NPL [Suspect]
     Dosage: 20 U, BID
  5. ASPIRIN [Concomitant]
     Dosage: 81 MG, BID
     Dates: start: 201201
  6. PROGRAF [Concomitant]
     Dosage: 1 MG, BID
  7. MYFORTIC [Concomitant]
     Dosage: 3 DF, EACH MORNING
  8. MYFORTIC [Concomitant]
     Dosage: 2 DF, EACH EVENING
  9. TOPROL [Concomitant]
     Indication: BLOOD PRESSURE
     Dosage: UNK, BID
  10. ZOCOR [Concomitant]

REACTIONS (3)
  - Cerebrovascular accident [Recovered/Resolved]
  - Speech disorder [Not Recovered/Not Resolved]
  - Weight decreased [Unknown]
